FAERS Safety Report 5326266-1 (Version None)
Quarter: 2007Q2

REPORT INFORMATION
  Report Type: 
  Country: None (occurrence: None)
  Receive Date: 20070516
  Receipt Date: 20070504
  Transmission Date: 20071010
  Serious: Yes (Other)
  Sender: FDA-Public Use
  Company Number: US-GENENTECH-241034

PATIENT
  Sex: Female

DRUGS (1)
  1. RITUXAN [Suspect]
     Indication: KIDNEY TRANSPLANT REJECTION
     Dosage: UNK, SINGLE
     Route: 042

REACTIONS (2)
  - ANTIBODY TEST POSITIVE [None]
  - KIDNEY TRANSPLANT REJECTION [None]
